FAERS Safety Report 9940996 (Version 2)
Quarter: 2014Q2

REPORT INFORMATION
  Report Type: Spontaneous
  Country: JP (occurrence: JP)
  Receive Date: 20140303
  Receipt Date: 20140402
  Transmission Date: 20141212
  Serious: Yes (Disabling)
  Sender: FDA-Public Use
  Company Number: JP-JNJFOC-20140215995

PATIENT
  Age: 75 Year
  Sex: Male
  Weight: 62 kg

DRUGS (8)
  1. XARELTO [Suspect]
     Indication: ATRIAL FIBRILLATION
     Route: 048
  2. XARELTO [Suspect]
     Indication: ATRIAL FIBRILLATION
     Route: 048
     Dates: start: 20140226
  3. XARELTO [Suspect]
     Indication: CEREBROVASCULAR ACCIDENT PROPHYLAXIS
     Route: 048
  4. XARELTO [Suspect]
     Indication: CEREBROVASCULAR ACCIDENT PROPHYLAXIS
     Route: 048
     Dates: start: 20140226
  5. LIPITOR [Concomitant]
     Route: 048
  6. AIMIX [Concomitant]
     Route: 048
  7. ARTIST [Concomitant]
     Route: 048
  8. BENZBROMARONE [Concomitant]
     Route: 048

REACTIONS (1)
  - Cerebral infarction [Not Recovered/Not Resolved]
